FAERS Safety Report 8033963-6 (Version None)
Quarter: 2012Q1

REPORT INFORMATION
  Report Type: 
  Country: None (occurrence: None)
  Receive Date: 20120110
  Receipt Date: 20111230
  Transmission Date: 20120608
  Serious: Yes (Hospitalization)
  Sender: FDA-Public Use
  Company Number: US-MERCK-1110USA00937

PATIENT
  Age: 51 Year
  Sex: Female

DRUGS (13)
  1. FOSAMAX [Suspect]
     Indication: OSTEOPENIA
     Route: 048
     Dates: end: 20080201
  2. VENTOLIN [Concomitant]
     Route: 065
     Dates: start: 19910101
  3. CALCIUM (UNSPECIFIED) [Concomitant]
     Route: 065
     Dates: start: 19900101
  4. FOSAMAX [Suspect]
     Indication: OSTEOPOROSIS
     Route: 048
     Dates: end: 20080201
  5. ALENDRONATE SODIUM [Suspect]
     Indication: OSTEOPENIA
     Route: 048
     Dates: start: 20080101, end: 20090901
  6. ADVAIR DISKUS 100/50 [Concomitant]
     Route: 065
     Dates: start: 20080101, end: 20110101
  7. METHOTREXATE [Concomitant]
     Route: 065
     Dates: start: 20050101
  8. OMEGA-3 MARINE TRIGLYCERIDES [Concomitant]
     Route: 065
     Dates: start: 19960101
  9. ALENDRONATE SODIUM [Suspect]
     Indication: OSTEOPOROSIS
     Route: 048
     Dates: start: 20080101, end: 20090901
  10. SINGULAIR [Concomitant]
     Route: 065
     Dates: start: 20050101
  11. ARAVA [Concomitant]
     Route: 065
     Dates: start: 20010101
  12. RELAFEN [Concomitant]
     Route: 065
     Dates: start: 19970101
  13. VITAMIN D (UNSPECIFIED) [Concomitant]
     Route: 065
     Dates: start: 19900101

REACTIONS (15)
  - NAUSEA [None]
  - BURSITIS [None]
  - HYPERLIPIDAEMIA [None]
  - GASTROOESOPHAGEAL REFLUX DISEASE [None]
  - FALL [None]
  - ADVERSE EVENT [None]
  - FRACTURE DELAYED UNION [None]
  - HYPERTENSION [None]
  - BRONCHITIS [None]
  - MUSCLE STRAIN [None]
  - INSOMNIA [None]
  - ARTHROPATHY [None]
  - RHINITIS ALLERGIC [None]
  - FEMUR FRACTURE [None]
  - PAIN [None]
